FAERS Safety Report 9156676 (Version 2)
Quarter: 2013Q2

REPORT INFORMATION
  Report Type: Spontaneous
  Country: GB (occurrence: None)
  Receive Date: 20130206
  Receipt Date: 20130528
  Transmission Date: 20140414
  Serious: Yes (Hospitalization, Other)
  Sender: FDA-Public Use
  Company Number: AUR-APL-2013-00972

PATIENT
  Sex: Male

DRUGS (4)
  1. BISOPROLOL [Suspect]
     Indication: HEART RATE IRREGULAR
  2. LOSARTAN (LOSARTAN) [Suspect]
     Indication: AORTIC ANEURYSM
  3. BENDROFLUMETHIAZIDE (BENDROFLUMETHIAZIDE) [Suspect]
     Indication: PRODUCT USED FOR UNKNOWN INDICATION
  4. ACETYLSALICYLIC ACID (ACETYLSALICYLIC ACID) [Suspect]
     Indication: PRODUCT USED FOR UNKNOWN INDICATION

REACTIONS (7)
  - Cardiac failure [None]
  - Aneurysm [None]
  - Blood pressure diastolic increased [None]
  - Transient ischaemic attack [None]
  - Drug interaction [None]
  - Abdominal distension [None]
  - Dyspnoea [None]
